FAERS Safety Report 7391290-4 (Version None)
Quarter: 2011Q2

REPORT INFORMATION
  Report Type: 
  Country: None (occurrence: None)
  Receive Date: 20110404
  Receipt Date: 20100727
  Transmission Date: 20111010
  Serious: Yes (Other)
  Sender: FDA-Public Use
  Company Number: US-PFIZER INC-2010094527

PATIENT

DRUGS (4)
  1. ZOLOFT [Suspect]
     Indication: DISSOCIATIVE IDENTITY DISORDER
     Dosage: UNK
  2. ZOLOFT [Suspect]
     Indication: BIPOLAR DISORDER
  3. HALDOL [Suspect]
     Indication: DISSOCIATIVE IDENTITY DISORDER
     Dosage: UNK
  4. HALDOL [Suspect]
     Indication: BIPOLAR DISORDER

REACTIONS (1)
  - DEPRESSION [None]
